FAERS Safety Report 4990240-5 (Version None)
Quarter: 2006Q2

REPORT INFORMATION
  Report Type: 
  Country: None (occurrence: None)
  Receive Date: 20060503
  Receipt Date: 20060117
  Transmission Date: 20061013
  Serious: No
  Sender: FDA-Public Use
  Company Number: JP-AVENTIS-200610162JP

PATIENT
  Age: 60 Year
  Sex: Male
  Weight: 52 kg

DRUGS (2)
  1. AMARYL [Suspect]
     Indication: DIABETES MELLITUS
     Route: 048
     Dates: start: 20050624, end: 20060213
  2. BASEN [Concomitant]
     Indication: DIABETES MELLITUS
     Route: 048
     Dates: start: 19990525

REACTIONS (2)
  - ALOPECIA [None]
  - MADAROSIS [None]
